FAERS Safety Report 14847636 (Version 1)
Quarter: 2018Q2

REPORT INFORMATION
  Report Type: Spontaneous
  Country: US (occurrence: US)
  Receive Date: 20180504
  Receipt Date: 20180504
  Transmission Date: 20180711
  Serious: Yes (Other)
  Sender: FDA-Public Use
  Company Number: US-AMGEN-USASP2018058935

PATIENT
  Age: 9 Year
  Sex: Male

DRUGS (3)
  1. BLINATUMOMAB [Suspect]
     Active Substance: BLINATUMOMAB
     Indication: PRECURSOR B-LYMPHOBLASTIC LYMPHOMA REFRACTORY
     Dosage: UNK
     Route: 065
  2. IMATINIB [Concomitant]
     Active Substance: IMATINIB
     Indication: ACUTE LYMPHOCYTIC LEUKAEMIA
  3. IMATINIB [Concomitant]
     Active Substance: IMATINIB
     Indication: PRECURSOR B-LYMPHOBLASTIC LYMPHOMA REFRACTORY

REACTIONS (2)
  - Leukaemic infiltration extramedullary [Not Recovered/Not Resolved]
  - Drug resistance [Unknown]
